FAERS Safety Report 8002384-4 (Version None)
Quarter: 2011Q4

REPORT INFORMATION
  Report Type: 
  Country: None (occurrence: None)
  Receive Date: 20111222
  Receipt Date: 20110729
  Transmission Date: 20120403
  Serious: No
  Sender: FDA-Public Use
  Company Number: US-GLAXOSMITHKLINE-A0939096A

PATIENT
  Age: 64 Year
  Sex: Male

DRUGS (1)
  1. NICORETTE [Suspect]
     Indication: EX-TOBACCO USER

REACTIONS (4)
  - FLATULENCE [None]
  - MUSCLE SPASMS [None]
  - DRUG ADMINISTRATION ERROR [None]
  - DIARRHOEA [None]
